FAERS Safety Report 12541151 (Version 2)
Quarter: 2016Q3

REPORT INFORMATION
  Report Type: Spontaneous
  Country: FR (occurrence: FR)
  Receive Date: 20160708
  Receipt Date: 20160712
  Transmission Date: 20161109
  Serious: Yes (Death)
  Sender: FDA-Public Use
  Company Number: FR-009507513-1607FRA003083

PATIENT
  Sex: Male

DRUGS (1)
  1. ORGARAN [Suspect]
     Active Substance: DANAPAROID SODIUM
     Indication: HEPARIN-INDUCED THROMBOCYTOPENIA
     Dosage: 2000 UNITS 2X/DAY (2 IN 1 D)
     Route: 058

REACTIONS (1)
  - Death [Fatal]
